FAERS Safety Report 12506955 (Version 1)
Quarter: 2016Q2

REPORT INFORMATION
  Report Type: Spontaneous
  Country: AU (occurrence: AU)
  Receive Date: 20160629
  Receipt Date: 20160629
  Transmission Date: 20160815
  Serious: Yes (Other)
  Sender: FDA-Public Use
  Company Number: AU-BRISTOL-MYERS SQUIBB COMPANY-BMS-2016-051072

PATIENT
  Sex: Male

DRUGS (3)
  1. DIABEX [Suspect]
     Active Substance: METFORMIN HYDROCHLORIDE
     Indication: HYPERGLYCAEMIA
     Dosage: 2 G, QD
     Route: 048
  2. DIABEX [Suspect]
     Active Substance: METFORMIN HYDROCHLORIDE
     Dosage: 1 G, BID
     Route: 048
  3. EYLEA [Concomitant]
     Active Substance: AFLIBERCEPT
     Indication: PRODUCT USED FOR UNKNOWN INDICATION
     Route: 065

REACTIONS (3)
  - Diabetic eye disease [Not Recovered/Not Resolved]
  - Fluid retention [Not Recovered/Not Resolved]
  - Diarrhoea [Not Recovered/Not Resolved]
